FAERS Safety Report 24138943 (Version 1)
Quarter: 2024Q3

REPORT INFORMATION
  Report Type: Report from Study
  Country: CA (occurrence: CA)
  Receive Date: 20240726
  Receipt Date: 20240726
  Transmission Date: 20241016
  Serious: Yes (Death, Other)
  Sender: SANDOZ
  Company Number: CA-SANDOZ-NVSC2022CA174165

PATIENT
  Sex: Male

DRUGS (1)
  1. HYRIMOZ [Suspect]
     Active Substance: ADALIMUMAB-ADAZ
     Indication: Ankylosing spondylitis
     Dosage: 40MG Q 2 WEEKS;EVERY TWO WEEKS
     Route: 058
     Dates: start: 20210830

REACTIONS (4)
  - Death [Fatal]
  - Ankylosing spondylitis [Unknown]
  - COVID-19 [Unknown]
  - Fatigue [Unknown]
